FAERS Safety Report 6333316-2 (Version None)
Quarter: 2009Q3

REPORT INFORMATION
  Report Type: 
  Country: None (occurrence: None)
  Receive Date: 20090828
  Receipt Date: 20090824
  Transmission Date: 20100115
  Serious: Yes (Other)
  Sender: FDA-Public Use
  Company Number: CA-ROXANE LABORATORIES, INC.-2009-RO-00869RO

PATIENT
  Sex: Female

DRUGS (3)
  1. CYCLOPHOSPHAMIDE [Suspect]
     Indication: MULTIPLE SCLEROSIS
  2. METHYLPREDNISOLONE [Concomitant]
     Route: 042
  3. INTERFERON-BETA [Concomitant]
     Indication: MULTIPLE SCLEROSIS

REACTIONS (2)
  - ALOPECIA [None]
  - DRUG INEFFECTIVE [None]
